FAERS Safety Report 5207852-6 (Version None)
Quarter: 2007Q1

REPORT INFORMATION
  Report Type: 
  Country: None (occurrence: None)
  Receive Date: 20070112
  Receipt Date: 20070104
  Transmission Date: 20070707
  Serious: Yes (Other)
  Sender: FDA-Public Use
  Company Number: GB-PFIZER INC-2007002108

PATIENT
  Sex: Female

DRUGS (2)
  1. LUSTRAL [Suspect]
     Route: 048
  2. VALPROATE SODIUM [Concomitant]
     Dosage: DAILY DOSE:2GRAM

REACTIONS (2)
  - RENAL IMPAIRMENT [None]
  - TREMOR [None]
